FAERS Safety Report 5588067-9 (Version None)
Quarter: 2008Q1

REPORT INFORMATION
  Report Type: 
  Country: None (occurrence: None)
  Receive Date: 20080111
  Receipt Date: 20080102
  Transmission Date: 20080703
  Serious: Yes (Hospitalization)
  Sender: FDA-Public Use
  Company Number: PHEH2008US00449

PATIENT
  Age: 64 Year
  Sex: Male
  Weight: 80.725 kg

DRUGS (31)
  1. ACETAMINOPHEN [Concomitant]
     Dosage: 650 MG, PRE-TRANSFUSION
     Route: 048
  2. ACETAMINOPHEN [Concomitant]
     Dosage: 650 MG, Q4H
     Route: 048
  3. ACYCLOVIR [Concomitant]
     Dosage: 400 MG, QD
  4. CASPOFUNGIN [Concomitant]
     Dosage: 50 MG, QD
  5. CLEOCIN T [Concomitant]
     Dosage: UNK, BID
     Route: 061
  6. BENADRYL ^PFIZER WARNER-LAMBERT^ [Concomitant]
     Dosage: 25 MG, PRE-TRANSFUSION
     Route: 048
  7. HEPARIN LOCK-FLUSH [Concomitant]
     Dosage: 2.5 ML, Q12H
  8. HEPARIN LOCK-FLUSH [Concomitant]
     Dosage: 2.5 MG, PRN
  9. LANTUS [Concomitant]
     Dosage: 14 IU, QHS
     Route: 058
  10. SYNTHROID [Concomitant]
     Dosage: 0.2 MG, QD
     Route: 048
  11. LIDOCAINE [Concomitant]
     Dosage: 10 ML, UNK
     Route: 023
  12. SINGULAIR [Concomitant]
     Dosage: 10 MG, QD
     Route: 048
  13. NYSTATIN [Concomitant]
     Dosage: UNK, BID
     Route: 061
  14. BACTRIM DS [Concomitant]
     Dosage: 1 DF, TIW
     Route: 048
  15. MAALOX /USA/ [Concomitant]
     Dosage: 30 ML, Q4H
     Route: 048
  16. NORCO [Concomitant]
     Dosage: 1 DF, Q3H
     Route: 048
  17. COLACE [Concomitant]
     Dosage: 100 MG, QD
     Route: 048
  18. MAGNESIUM OXIDE [Concomitant]
     Dosage: 400 MG, ONCE/SINGLE
     Route: 048
     Dates: start: 20080101, end: 20080101
  19. MAGNESIUM SULFATE [Concomitant]
     Dosage: 2 G, ONCE/SINGLE
     Route: 042
     Dates: start: 20080102, end: 20080102
  20. K-DUR 10 [Concomitant]
     Dosage: 40 MEQ, QD
     Route: 048
     Dates: start: 20080101, end: 20080102
  21. TASIGNA [Suspect]
     Indication: ACUTE LYMPHOCYTIC LEUKAEMIA
     Dosage: 400 MG, BID
     Route: 048
  22. DEXTROSE [Concomitant]
     Dosage: 12.5 G, PRN
     Route: 042
  23. DILAUDID [Concomitant]
     Dosage: 0.5 MG, Q2H
     Route: 042
  24. NOVOLOG [Concomitant]
     Dosage: AC AND HS
     Route: 058
  25. ZOFRAN [Concomitant]
     Dosage: 4 MG, Q4H
     Route: 042
  26. MORPHINE [Concomitant]
     Dosage: 1 MG, Q2H
     Route: 042
  27. SODIUM BICARBONATE [Concomitant]
     Dosage: 50 MEQ, PRN
     Route: 042
  28. FOLIC ACID [Concomitant]
     Dosage: 1 MG, QD
     Route: 048
  29. AMBIEN [Concomitant]
     Dosage: 10 MG, QHS
     Route: 048
  30. SENNA [Concomitant]
     Dosage: 1 DF, QD
     Route: 048
  31. OCULAR LUBRICANT /00445101/ [Concomitant]
     Dosage: 1 DRP, PRN

REACTIONS (1)
  - RASH ERYTHEMATOUS [None]
